FAERS Safety Report 25019333 (Version 1)
Quarter: 2025Q1

REPORT INFORMATION
  Report Type: Report from Study
  Country: US (occurrence: US)
  Receive Date: 20250227
  Receipt Date: 20250227
  Transmission Date: 20250409
  Serious: Yes (Other)
  Sender: UPSHER SMITH LABORATORIES
  Company Number: US-UPSHER-SMITH LABORATORIES, LLC-20240500109

PATIENT
  Age: 31 Year
  Sex: Female

DRUGS (4)
  1. ISOTRETINOIN [Suspect]
     Active Substance: ISOTRETINOIN
     Indication: Product used for unknown indication
     Route: 065
     Dates: start: 20231215, end: 20240225
  2. ISOTRETINOIN [Suspect]
     Active Substance: ISOTRETINOIN
     Route: 065
     Dates: start: 20230616, end: 20230817
  3. ISOTRETINOIN [Concomitant]
     Active Substance: ISOTRETINOIN
     Indication: Product used for unknown indication
     Route: 065
     Dates: start: 20230505, end: 20230817
  4. ISOTRETINOIN [Concomitant]
     Active Substance: ISOTRETINOIN
     Route: 065
     Dates: start: 20231215

REACTIONS (2)
  - Abortion spontaneous [None]
  - Exposure during pregnancy [Unknown]

NARRATIVE: CASE EVENT DATE: 20240225
